FAERS Safety Report 5257391-1 (Version None)
Quarter: 2007Q1

REPORT INFORMATION
  Report Type: 
  Country: None (occurrence: None)
  Receive Date: 20070307
  Receipt Date: 20060808
  Transmission Date: 20070707
  Serious: No
  Sender: FDA-Public Use
  Company Number: US-GLAXOSMITHKLINE-A0612198A

PATIENT
  Age: 43 Year
  Sex: Female
  Weight: 101.4 kg

DRUGS (10)
  1. REQUIP [Suspect]
     Indication: RESTLESS LEGS SYNDROME
     Route: 048
     Dates: start: 20060701
  2. AMOXICILLIN [Concomitant]
     Indication: RESTLESS LEGS SYNDROME
     Dosage: 500MG AT NIGHT
     Route: 048
  3. ALLERGY SHOTS [Concomitant]
  4. ALLEGRA [Concomitant]
     Dosage: 180MG IN THE MORNING
     Route: 048
  5. DICLOFENAC SODIUM [Concomitant]
     Dosage: 50MG IN THE MORNING
     Route: 048
  6. DIPHENHYDRAMINE HCL [Concomitant]
     Dosage: 25MG AS REQUIRED
     Route: 048
  7. APAP TAB [Concomitant]
     Dosage: 2TAB AS REQUIRED
     Route: 048
  8. CALCIUM LACTATE [Concomitant]
     Route: 048
  9. XANAX [Concomitant]
     Dosage: .5MG AS REQUIRED
     Route: 048
  10. VICODIN [Concomitant]
     Route: 048

REACTIONS (1)
  - DYSKINESIA [None]
